FAERS Safety Report 14119946 (Version 1)
Quarter: 2017Q4

REPORT INFORMATION
  Report Type: Spontaneous
  Country: US (occurrence: US)
  Receive Date: 20171024
  Receipt Date: 20171024
  Transmission Date: 20180321
  Serious: Yes (Other)
  Sender: FDA-Public Use
  Company Number: None

PATIENT
  Age: 50 Year
  Sex: Female
  Weight: 105.3 kg

DRUGS (4)
  1. LEVOXY [Concomitant]
  2. BUPROPION ER/SR [Concomitant]
  3. DULOXETINE. [Concomitant]
     Active Substance: DULOXETINE
  4. MODAFINIL. [Suspect]
     Active Substance: MODAFINIL
     Indication: NARCOLEPSY
     Dosage: ?          QUANTITY:45 TABLET(S);?
     Route: 048
     Dates: start: 20171009, end: 20171011

REACTIONS (7)
  - Product substitution issue [None]
  - Product shape issue [None]
  - Dizziness [None]
  - Middle insomnia [None]
  - Nausea [None]
  - Vertigo [None]
  - Insomnia [None]

NARRATIVE: CASE EVENT DATE: 20171010
